FAERS Safety Report 14934716 (Version 7)
Quarter: 2018Q3

REPORT INFORMATION
  Report Type: Report from Study
  Country: US (occurrence: US)
  Receive Date: 20180524
  Receipt Date: 20180816
  Transmission Date: 20181010
  Serious: Yes (Hospitalization, Other)
  Sender: FDA-Public Use
  Company Number: US-GILEAD-2018-0339892

PATIENT
  Age: 76 Year
  Sex: Female

DRUGS (4)
  1. ADCIRCA [Concomitant]
     Active Substance: TADALAFIL
  2. REMODULIN [Suspect]
     Active Substance: TREPROSTINIL
     Indication: PRODUCT USED FOR UNKNOWN INDICATION
     Dosage: UNK
     Route: 065
  3. ORENITRAM [Concomitant]
     Active Substance: TREPROSTINIL
  4. AMBRISENTAN [Suspect]
     Active Substance: AMBRISENTAN
     Indication: PRODUCT USED FOR UNKNOWN INDICATION
     Dosage: 10 MG, QD
     Route: 065
     Dates: start: 20170711

REACTIONS (8)
  - Cholecystectomy [Unknown]
  - Diarrhoea [Unknown]
  - Injection site erythema [Unknown]
  - Hyperhidrosis [Unknown]
  - Injection site swelling [Unknown]
  - Dry mouth [Unknown]
  - Hot flush [Not Recovered/Not Resolved]
  - Abdominal discomfort [Unknown]
